FAERS Safety Report 4613628-0 (Version None)
Quarter: 2005Q1

REPORT INFORMATION
  Report Type: 
  Country: None (occurrence: None)
  Receive Date: 20050315
  Receipt Date: 20030319
  Transmission Date: 20050727
  Serious: Yes (Death)
  Sender: FDA-Public Use
  Company Number: 5026

PATIENT
  Age: 38 Year
  Sex: Male

DRUGS (3)
  1. MIDAZOLAM [Suspect]
     Indication: SENSORY DISTURBANCE
     Dosage: 2 MG ONCE
  2. PROPOFOL [Suspect]
     Indication: SENSORY DISTURBANCE
     Dosage: 500 MG TOTAL IV
     Route: 042
  3. ALFENTANIL [Suspect]
     Indication: SENSORY DISTURBANCE
     Dosage: 2 MG ONCE IV
     Route: 042

REACTIONS (2)
  - MUSCLE RIGIDITY [None]
  - THERAPY NON-RESPONDER [None]
